FAERS Safety Report 8420453-1 (Version None)
Quarter: 2012Q2

REPORT INFORMATION
  Report Type: 
  Country: None (occurrence: None)
  Receive Date: 20120608
  Receipt Date: 20120528
  Transmission Date: 20120825
  Serious: Yes (Hospitalization)
  Sender: FDA-Public Use
  Company Number: IT-TEVA-340993ISR

PATIENT
  Sex: Male

DRUGS (8)
  1. DOXORUBICIN HCL [Suspect]
     Indication: LYMPHOMA
     Route: 042
     Dates: start: 20110919, end: 20120228
  2. BLEOMYCIN SULFATE [Suspect]
     Indication: LYMPHOMA
     Route: 042
     Dates: start: 20110919, end: 20120228
  3. ZAPROL [Concomitant]
     Dates: start: 20110919
  4. BACTRIM [Concomitant]
     Dates: start: 20110901
  5. ARANESP [Concomitant]
     Dates: start: 20110919, end: 20120228
  6. VINBLASTINE SULFATE [Suspect]
     Indication: LYMPHOMA
     Route: 042
     Dates: start: 20110919, end: 20120228
  7. DACARBAZINE [Suspect]
     Indication: LYMPHOMA
     Route: 042
     Dates: start: 20110919, end: 20120228
  8. METFORMIN HCL [Concomitant]

REACTIONS (2)
  - URINARY RETENTION [None]
  - URINARY TRACT INFECTION [None]
